FAERS Safety Report 21052179 (Version 2)
Quarter: 2022Q3

REPORT INFORMATION
  Report Type: Spontaneous
  Country: IT (occurrence: IT)
  Receive Date: 20220707
  Receipt Date: 20220714
  Transmission Date: 20221026
  Serious: Yes (Death, Other)
  Sender: FDA-Public Use
  Company Number: IT-NOVARTISPH-NVSC2022IT154098

PATIENT
  Sex: Male

DRUGS (1)
  1. KYMRIAH [Suspect]
     Active Substance: TISAGENLECLEUCEL
     Indication: Diffuse large B-cell lymphoma
     Dosage: ONCE/SINGLE
     Route: 042
     Dates: start: 20220525

REACTIONS (8)
  - Toxicity to various agents [Fatal]
  - Cytokine release syndrome [Unknown]
  - Cytopenia [Unknown]
  - Febrile neutropenia [Unknown]
  - Hypogammaglobulinaemia [Unknown]
  - Tumour lysis syndrome [Unknown]
  - Nervous system disorder [Unknown]
  - Infection [Unknown]
